FAERS Safety Report 8229325-9 (Version None)
Quarter: 2012Q1

REPORT INFORMATION
  Report Type: 
  Country: None (occurrence: None)
  Receive Date: 20120322
  Receipt Date: 20120319
  Transmission Date: 20120608
  Serious: Yes (Other)
  Sender: FDA-Public Use
  Company Number: FR-PFIZER INC-2012070514

PATIENT
  Age: 68 Year
  Sex: Female

DRUGS (5)
  1. ASPIRIN [Concomitant]
  2. LOVENOX [Concomitant]
  3. LEVOTHYROXINE SODIUM [Concomitant]
  4. FLECAINIDE ACETATE [Concomitant]
  5. ATORVASTATIN [Suspect]
     Indication: CEREBROVASCULAR ACCIDENT
     Dosage: 80 MG, 1X/DAY
     Route: 048
     Dates: start: 20111223, end: 20120111

REACTIONS (2)
  - HEPATITIS [None]
  - DRUG HYPERSENSITIVITY [None]
